FAERS Safety Report 5272539-0 (Version None)
Quarter: 2007Q1

REPORT INFORMATION
  Report Type: 
  Country: None (occurrence: None)
  Receive Date: 20070322
  Receipt Date: 20061103
  Transmission Date: 20070707
  Serious: No
  Sender: FDA-Public Use
  Company Number: US-BRISTOL-MYERS SQUIBB COMPANY-13566658

PATIENT
  Age: 59 Year
  Sex: Female

DRUGS (12)
  1. KENALOG [Suspect]
  2. LIDOCAINE [Suspect]
     Indication: BACK PAIN
     Dates: start: 20061030
  3. SYNTHROID [Concomitant]
  4. ALLEGRA [Concomitant]
  5. ACTIVELLA [Concomitant]
  6. VYTORIN [Concomitant]
  7. SINGULAIR [Concomitant]
  8. NEXIUM [Concomitant]
  9. ADVAIR DISKUS 100/50 [Concomitant]
     Dosage: 200MG/150MG
  10. FLONASE [Concomitant]
  11. GLUCOSAMINE [Concomitant]
  12. CHONDROITIN [Concomitant]

REACTIONS (3)
  - IRRITABILITY [None]
  - MOOD SWINGS [None]
  - THIRST [None]
